FAERS Safety Report 9945378 (Version 3)
Quarter: 2015Q1

REPORT INFORMATION
  Report Type: Report from Study
  Country: US (occurrence: US)
  Receive Date: 20140303
  Receipt Date: 20150127
  Transmission Date: 20150721
  Serious: Yes (Other)
  Sender: FDA-Public Use
  Company Number: US-ABBVIE-13P-163-1049121-00

PATIENT
  Age: 46 Year
  Sex: Female
  Weight: 67.19 kg

DRUGS (9)
  1. TETANUS VACCIN [Suspect]
     Active Substance: CLOSTRIDIUM TETANI TOXOID ANTIGEN (FORMALDEHYDE INACTIVATED)
     Indication: LACERATION
     Route: 065
     Dates: start: 201501, end: 201501
  2. OXYCODONE [Concomitant]
     Active Substance: OXYCODONE
     Indication: PAIN
  3. PHENERGAN [Concomitant]
     Active Substance: PROMETHAZINE HYDROCHLORIDE
     Indication: SARCOIDOSIS
  4. HUMIRA [Suspect]
     Active Substance: ADALIMUMAB
     Indication: SARCOIDOSIS
     Route: 058
     Dates: start: 201103, end: 2013
  5. OPANA [Concomitant]
     Active Substance: OXYMORPHONE HYDROCHLORIDE
     Indication: PAIN
  6. HUMIRA [Suspect]
     Active Substance: ADALIMUMAB
     Indication: OFF LABEL USE
     Route: 065
     Dates: start: 2014, end: 201411
  7. HUMIRA [Suspect]
     Active Substance: ADALIMUMAB
     Route: 065
     Dates: start: 201411, end: 201411
  8. PREDNISONE. [Concomitant]
     Active Substance: PREDNISONE
     Indication: SARCOIDOSIS
  9. ENBREL [Suspect]
     Active Substance: ETANERCEPT
     Indication: SARCOIDOSIS
     Route: 065
     Dates: start: 2013, end: 2013

REACTIONS (7)
  - Drug ineffective [Unknown]
  - Laceration [Not Recovered/Not Resolved]
  - Drug ineffective for unapproved indication [Not Recovered/Not Resolved]
  - Injection site pain [Recovering/Resolving]
  - Off label use [Unknown]
  - Vomiting [Recovered/Resolved]
  - Choking sensation [Recovered/Resolved]

NARRATIVE: CASE EVENT DATE: 2011
